FAERS Safety Report 19861951 (Version 7)
Quarter: 2022Q2

REPORT INFORMATION
  Report Type: Spontaneous
  Country: US (occurrence: US)
  Receive Date: 20210921
  Receipt Date: 20220527
  Transmission Date: 20220721
  Serious: Yes (Other)
  Sender: FDA-Public Use
  Company Number: US-PFIZER INC-202101228367

PATIENT
  Age: 32 Year
  Sex: Female
  Weight: 65.77 kg

DRUGS (2)
  1. PRISTIQ EXTENDED-RELEASE [Suspect]
     Active Substance: DESVENLAFAXINE SUCCINATE
     Indication: Major depression
     Dosage: 100 MG, 1X/DAY
     Route: 048
     Dates: start: 202001
  2. PRISTIQ EXTENDED-RELEASE [Suspect]
     Active Substance: DESVENLAFAXINE SUCCINATE
     Dosage: 150 MG, DAILY (TAKE 150 MG (100MG+50MG) TABS PO QDAILY)

REACTIONS (8)
  - Systemic lupus erythematosus [Unknown]
  - Malaise [Unknown]
  - Rheumatic disorder [Unknown]
  - Mental disorder [Unknown]
  - Communication disorder [Unknown]
  - Arthralgia [Unknown]
  - Speech disorder [Unknown]
  - Prescribed overdose [Unknown]

NARRATIVE: CASE EVENT DATE: 20210101
